FAERS Safety Report 20526346 (Version 1)
Quarter: 2022Q1

REPORT INFORMATION
  Report Type: Spontaneous
  Country: US (occurrence: US)
  Receive Date: 20220228
  Receipt Date: 20220228
  Transmission Date: 20220423
  Serious: Yes (Death, Other)
  Sender: FDA-Public Use
  Company Number: US-BAYER-2022A028647

PATIENT
  Age: 57 Year
  Sex: Male
  Weight: 104.58 kg

DRUGS (10)
  1. STIVARGA [Suspect]
     Active Substance: REGORAFENIB
     Dosage: 80 MG ON DAYS 1-7
     Route: 048
  2. STIVARGA [Suspect]
     Active Substance: REGORAFENIB
     Dosage: 120 MG ON DAYS 8-14
     Route: 048
  3. STIVARGA [Suspect]
     Active Substance: REGORAFENIB
     Dosage: 160 MG ON DAYS 15-21
     Route: 048
  4. LONSURF [Suspect]
     Active Substance: TIPIRACIL HYDROCHLORIDE\TRIFLURIDINE
     Indication: Colon cancer
     Dosage: 75 MG, BID
     Route: 048
     Dates: start: 20211117, end: 20211205
  5. FERROUS SULFATE [Concomitant]
     Active Substance: FERROUS SULFATE
     Dosage: 325 MG, QD
     Route: 048
  6. VITAMIN D3 [Concomitant]
     Active Substance: CHOLECALCIFEROL
     Dosage: 10 ?G, QD
     Route: 048
  7. METOPROLOL [Concomitant]
     Active Substance: METOPROLOL
     Dosage: 25 MG, BID
     Route: 048
  8. PROCHLORPERAZINE [Concomitant]
     Active Substance: PROCHLORPERAZINE
     Indication: Nausea
     Dosage: 10 MG, QID
  9. CALCIUM CARBONATE [Concomitant]
     Active Substance: CALCIUM CARBONATE
     Dosage: 500 MG, BID
     Route: 048
  10. GABAPENTIN [Concomitant]
     Active Substance: GABAPENTIN
     Dosage: 300 MG, QID
     Route: 048

REACTIONS (15)
  - Colon cancer metastatic [Fatal]
  - Ascites [Unknown]
  - Thrombocytopenia [Unknown]
  - Leukocytosis [Unknown]
  - Anaemia [Recovered/Resolved]
  - Abdominal distension [Unknown]
  - Diarrhoea [Unknown]
  - Chromaturia [Unknown]
  - Weight decreased [Unknown]
  - Fatigue [None]
  - Dyspnoea [Unknown]
  - Urge incontinence [Unknown]
  - Umbilical hernia [Unknown]
  - Nausea [Unknown]
  - Off label use [None]
